FAERS Safety Report 24624202 (Version 1)
Quarter: 2024Q4

REPORT INFORMATION
  Report Type: Spontaneous
  Country: US (occurrence: US)
  Receive Date: 20241115
  Receipt Date: 20241115
  Transmission Date: 20250115
  Serious: Yes (Other)
  Sender: MYLAN
  Company Number: US-MYLANLABS-2024M1102230

PATIENT
  Age: 4 Year
  Sex: Male

DRUGS (5)
  1. LATANOPROST [Suspect]
     Active Substance: LATANOPROST
     Indication: Intraocular pressure increased
     Dosage: UNK UNK, HS (NIGHTLY)
     Route: 065
  2. DORZOLAMIDE\TIMOLOL [Suspect]
     Active Substance: DORZOLAMIDE\TIMOLOL
     Indication: Intraocular pressure increased
     Dosage: UNK
     Route: 065
  3. APRACLONIDINE [Suspect]
     Active Substance: APRACLONIDINE HYDROCHLORIDE
     Indication: Intraocular pressure increased
     Dosage: UNK UNK, BID,TWICE DAILY IN THE RIGHT EYE.
     Route: 047
  4. PREDNISOLONE ACETATE [Concomitant]
     Active Substance: PREDNISOLONE ACETATE
     Indication: Juvenile xanthogranuloma
     Dosage: UNK,4 TIMES DAILY OD FOR 4 WEEKS, FOLLOWED  BY A GRADUAL TAPER EVERY 4 WEEKS DOWN TO ONCE DAILY DOSE
     Route: 061
  5. DIFLUPREDNATE [Concomitant]
     Active Substance: DIFLUPREDNATE
     Indication: Product used for unknown indication
     Dosage: UNK UNK, QID (4 TIMES DAILY FOR 1 WEEK)
     Route: 065

REACTIONS (1)
  - Drug ineffective [Unknown]
